FAERS Safety Report 5244971-2 (Version None)
Quarter: 2007Q1

REPORT INFORMATION
  Report Type: 
  Country: None (occurrence: None)
  Receive Date: 20070221
  Receipt Date: 20070221
  Transmission Date: 20070707
  Serious: Yes (Other)
  Sender: FDA-Public Use
  Company Number: None

PATIENT
  Sex: Male
  Weight: 68.0396 kg

DRUGS (1)
  1. DICLOXACILLIN [Suspect]
     Indication: PENILE ABSCESS
     Dosage: 500MG  EVERY 6 HOURS PO   ONE DAY
     Route: 048
     Dates: start: 20070216, end: 20070217

REACTIONS (1)
  - ANAPHYLACTIC REACTION [None]
